FAERS Safety Report 14103664 (Version 4)
Quarter: 2017Q4

REPORT INFORMATION
  Report Type: Spontaneous
  Country: GB (occurrence: US)
  Receive Date: 20171018
  Receipt Date: 20171031
  Transmission Date: 20180321
  Serious: Yes (Other)
  Sender: FDA-Public Use
  Company Number: GB-009507513-1710USA009090

PATIENT
  Age: 23 Year
  Sex: Female

DRUGS (1)
  1. NEXPLANON [Suspect]
     Active Substance: ETONOGESTREL
     Indication: CONTRACEPTION
     Dosage: 1 DF, UNK
     Route: 059
     Dates: start: 201509, end: 201702

REACTIONS (9)
  - Surgery [Recovered/Resolved]
  - Migration of implanted drug [Recovered/Resolved]
  - Irritability [Unknown]
  - Anger [Unknown]
  - Feeling abnormal [Unknown]
  - Device difficult to use [Recovered/Resolved]
  - Mood swings [Unknown]
  - Complication associated with device [Recovered/Resolved]
  - Depressed mood [Unknown]

NARRATIVE: CASE EVENT DATE: 2016
